FAERS Safety Report 25218514 (Version 1)
Quarter: 2025Q2

REPORT INFORMATION
  Report Type: Spontaneous
  Country: US (occurrence: US)
  Receive Date: 20250421
  Receipt Date: 20250421
  Transmission Date: 20250716
  Serious: No
  Sender: JOHNSON AND JOHNSON
  Company Number: US-BAYER-2025A030033

PATIENT
  Age: 73 Year
  Sex: Male
  Weight: 81.633 kg

DRUGS (8)
  1. XARELTO [Suspect]
     Active Substance: RIVAROXABAN
     Indication: Product used for unknown indication
     Route: 048
  2. ADEMPAS [Suspect]
     Active Substance: RIOCIGUAT
     Indication: Pulmonary arterial hypertension
     Route: 065
     Dates: start: 20240402
  3. ADEMPAS [Suspect]
     Active Substance: RIOCIGUAT
     Dosage: 1.5 MG, TID
     Route: 048
  4. SIMVASTATIN [Concomitant]
     Active Substance: SIMVASTATIN
     Indication: Product used for unknown indication
  5. VITAMIN D3 [Concomitant]
     Active Substance: CHOLECALCIFEROL
     Indication: Product used for unknown indication
  6. LASIX [Concomitant]
     Active Substance: FUROSEMIDE
     Indication: Product used for unknown indication
  7. Glucosamine + chondroitin + msm [Concomitant]
     Indication: Product used for unknown indication
  8. PRILOSEC OTC [Concomitant]
     Active Substance: OMEPRAZOLE MAGNESIUM
     Indication: Product used for unknown indication

REACTIONS (13)
  - Influenza [Unknown]
  - Ageusia [Unknown]
  - Decreased appetite [Unknown]
  - Weight decreased [Unknown]
  - Tongue dry [Unknown]
  - Dry mouth [Unknown]
  - Nasal congestion [Unknown]
  - Nausea [Unknown]
  - Dyspepsia [Unknown]
  - Head discomfort [Unknown]
  - Pyrexia [Unknown]
  - Feeling abnormal [Unknown]
  - Epistaxis [Not Recovered/Not Resolved]

NARRATIVE: CASE EVENT DATE: 20250201
